FAERS Safety Report 17536017 (Version 2)
Quarter: 2020Q2

REPORT INFORMATION
  Report Type: Spontaneous
  Country: IE (occurrence: IE)
  Receive Date: 20200313
  Receipt Date: 20200409
  Transmission Date: 20200713
  Serious: Yes (Death, Hospitalization, Other)
  Sender: FDA-Public Use
  Company Number: IE-BRISTOL-MYERS SQUIBB COMPANY-BMS-2020-022238

PATIENT
  Age: 72 Year
  Sex: Male

DRUGS (7)
  1. NIVOLUMAB [Suspect]
     Active Substance: NIVOLUMAB
     Indication: PRODUCT USED FOR UNKNOWN INDICATION
     Dosage: UNK
     Route: 065
  2. ASPIRIN [ACETYLSALICYLIC ACID] [Concomitant]
     Active Substance: ASPIRIN
     Indication: CARDIAC DISORDER
     Dosage: 75 MILLIGRAM, QD
     Route: 048
     Dates: start: 2006, end: 20200307
  3. TAMSULOSIN [Concomitant]
     Active Substance: TAMSULOSIN
     Indication: BENIGN PROSTATIC HYPERPLASIA
     Dosage: 400 MICROGRAM, QD
     Route: 048
     Dates: start: 2006, end: 20200307
  4. ATORVASTATIN [Concomitant]
     Active Substance: ATORVASTATIN
     Indication: CARDIAC DISORDER
     Dosage: 20 MILLIGRAM, QD
     Route: 048
     Dates: start: 2006, end: 20200307
  5. INNOHEP [Concomitant]
     Active Substance: TINZAPARIN SODIUM
     Indication: PULMONARY EMBOLISM
     Dosage: 1700 UNIT, QD
     Route: 058
     Dates: start: 20190901, end: 20200307
  6. ESOMEPRAZOLE. [Concomitant]
     Active Substance: ESOMEPRAZOLE MAGNESIUM
     Indication: CARDIAC DISORDER
     Dosage: 40 MILLIGRAM, QD
     Route: 048
     Dates: start: 2006, end: 20200307
  7. METOPROLOL. [Concomitant]
     Active Substance: METOPROLOL
     Indication: CARDIAC DISORDER
     Dosage: 50 MILLIGRAM, TID
     Route: 048
     Dates: start: 2006, end: 20200307

REACTIONS (2)
  - Malignant neoplasm progression [Fatal]
  - Hypercalcaemia [Unknown]

NARRATIVE: CASE EVENT DATE: 20200226
